FAERS Safety Report 9714418 (Version 2)
Quarter: 2014Q1

REPORT INFORMATION
  Report Type: Spontaneous
  Country: US (occurrence: US)
  Receive Date: 20131126
  Receipt Date: 20140102
  Transmission Date: 20141002
  Serious: Yes (Death)
  Sender: FDA-Public Use
  Company Number: US-UCBSA-103752

PATIENT
  Sex: Male
  Weight: 58.96 kg

DRUGS (2)
  1. KEPPRA [Suspect]
  2. DILANTIN [Concomitant]

REACTIONS (2)
  - Respiratory fume inhalation disorder [Fatal]
  - Convulsion [Not Recovered/Not Resolved]
